FAERS Safety Report 7231466-X (Version None)
Quarter: 2011Q1

REPORT INFORMATION
  Report Type: 
  Country: None (occurrence: None)
  Receive Date: 20110118
  Receipt Date: 20110113
  Transmission Date: 20110831
  Serious: Yes (Other)
  Sender: FDA-Public Use
  Company Number: DE-PFIZER INC-2010152062

PATIENT
  Sex: Female

DRUGS (4)
  1. CHAMPIX [Suspect]
     Indication: NASOPHARYNGITIS
  2. CHAMPIX [Suspect]
     Indication: TOBACCO ABUSE
     Dosage: UNK
  3. CHAMPIX [Suspect]
     Indication: BRONCHITIS
  4. CHAMPIX [Suspect]
     Indication: SINUSITIS

REACTIONS (3)
  - SUICIDAL IDEATION [None]
  - MENTAL DISORDER [None]
  - PSYCHOTIC DISORDER [None]
